FAERS Safety Report 11504902 (Version 1)
Quarter: 2015Q3

REPORT INFORMATION
  Report Type: Spontaneous
  Country: US (occurrence: US)
  Receive Date: 20150915
  Receipt Date: 20150915
  Transmission Date: 20151125
  Serious: No
  Sender: FDA-Public Use
  Company Number: US-ROCHE-789702

PATIENT
  Sex: Female

DRUGS (5)
  1. PEGASYS [Suspect]
     Active Substance: PEGINTERFERON ALFA-2A
     Indication: HEPATITIS C
     Route: 065
  2. PEGASYS [Suspect]
     Active Substance: PEGINTERFERON ALFA-2A
     Route: 065
  3. RIBAVIRIN. [Suspect]
     Active Substance: RIBAVIRIN
     Indication: HEPATITIS C
     Route: 065
  4. TELAPREVIR [Concomitant]
     Active Substance: TELAPREVIR
     Dosage: DRUG: INCIVEK PILLS FOR 12 WEEKS
     Route: 065
  5. RIBASPHERE [Concomitant]
     Active Substance: RIBAVIRIN
     Dosage: RIBASPHERE 600MG IN AM AND 400MG IN PM
     Route: 065

REACTIONS (2)
  - Alopecia [Unknown]
  - Malaise [Unknown]
